FAERS Safety Report 5202239-4 (Version None)
Quarter: 2007Q1

REPORT INFORMATION
  Report Type: 
  Country: None (occurrence: None)
  Receive Date: 20070109
  Receipt Date: 20061229
  Transmission Date: 20070707
  Serious: Yes (Hospitalization)
  Sender: FDA-Public Use
  Company Number: HU-JNJFOC-20061004831

PATIENT
  Age: 46 Year
  Sex: Male

DRUGS (3)
  1. TAVANIC [Suspect]
     Indication: VIRAL INFECTION
     Route: 048
  2. TAVANIC [Suspect]
     Indication: PYREXIA
     Route: 048
  3. ACETAMINOPHEN [Concomitant]
     Route: 065

REACTIONS (4)
  - PARAESTHESIA [None]
  - PERONEAL NERVE PALSY [None]
  - POLYARTERITIS NODOSA [None]
  - TENDON RUPTURE [None]
